FAERS Safety Report 5904787-8 (Version None)
Quarter: 2008Q3

REPORT INFORMATION
  Report Type: 
  Country: None (occurrence: None)
  Receive Date: 20080909
  Receipt Date: 20080314
  Transmission Date: 20090109
  Serious: No
  Sender: FDA-Public Use
  Company Number: 163-20785-08030900

PATIENT
  Age: 78 Year
  Sex: Female

DRUGS (6)
  1. THALOMID [Suspect]
     Indication: MULTIPLE MYELOMA
     Dosage: 50 MG, 1 IN 1 D, ORAL
     Route: 048
     Dates: start: 20070202, end: 20071005
  2. MELPHALAN (MELPHALAN) [Concomitant]
  3. PREDNISONE [Concomitant]
  4. CALCIUM WITH VITAMIN D (CALCIUM WITH VITAMIN D) [Concomitant]
  5. FISH OIL (FISH OIL) [Concomitant]
  6. ACETAMINOPHEN [Concomitant]

REACTIONS (4)
  - ANAEMIA [None]
  - NEUTROPENIA [None]
  - PANCYTOPENIA [None]
  - THROMBOCYTOPENIA [None]
